FAERS Safety Report 14258002 (Version 3)
Quarter: 2018Q1

REPORT INFORMATION
  Report Type: Spontaneous
  Country: ES (occurrence: ES)
  Receive Date: 20171207
  Receipt Date: 20180206
  Transmission Date: 20180508
  Serious: Yes (Other)
  Sender: FDA-Public Use
  Company Number: ES-ROCHE-2037360

PATIENT
  Age: 47 Year
  Sex: Female

DRUGS (3)
  1. RITUXIMAB. [Suspect]
     Active Substance: RITUXIMAB
     Indication: NEUROMYELITIS OPTICA SPECTRUM DISORDER
     Dosage: FIRST CYCLE
     Route: 042
  2. RITUXIMAB. [Suspect]
     Active Substance: RITUXIMAB
     Dosage: SECOND CYCLE
     Route: 042
  3. RITUXIMAB. [Suspect]
     Active Substance: RITUXIMAB
     Dosage: THIRD CYCLE
     Route: 042

REACTIONS (3)
  - Off label use [Unknown]
  - Immune thrombocytopenic purpura [Recovered/Resolved]
  - Intentional product use issue [Unknown]
